FAERS Safety Report 8903695 (Version 2)
Quarter: 2013Q3

REPORT INFORMATION
  Report Type: Spontaneous
  Country: US (occurrence: US)
  Receive Date: 20121113
  Receipt Date: 20130927
  Transmission Date: 20140515
  Serious: No
  Sender: FDA-Public Use
  Company Number: US-ASTRAZENECA-2012SE84210

PATIENT
  Age: 81 Year
  Sex: Female
  Weight: 79.4 kg

DRUGS (11)
  1. CRESTOR [Suspect]
     Indication: BLOOD CHOLESTEROL INCREASED
     Route: 048
     Dates: start: 2006
  2. OMEPRAZOLE [Suspect]
     Indication: HIATUS HERNIA
     Route: 048
  3. OMEPRAZOLE [Suspect]
     Indication: GASTROOESOPHAGEAL REFLUX DISEASE
     Route: 048
  4. ZETIA [Concomitant]
     Indication: ILL-DEFINED DISORDER
  5. VITAMIN B COMPLEX [Concomitant]
     Indication: SUPPLEMENTATION THERAPY
  6. IRON DESCRIBED AS FERROUS SULFATE [Concomitant]
     Indication: SUPPLEMENTATION THERAPY
     Dosage: 65 MG 300 MG UNKNOWN
  7. ASPIRIN [Concomitant]
     Indication: SUPPLEMENTATION THERAPY
  8. FISH OIL [Concomitant]
     Indication: SUPPLEMENTATION THERAPY
  9. VITAMIN D3 [Concomitant]
     Indication: SUPPLEMENTATION THERAPY
     Dosage: 2000 IU 50 MCG DAILY
  10. MULTIVITAMIN DESCRIBED AS GENERIC CENTRUM SILVER [Concomitant]
     Indication: SUPPLEMENTATION THERAPY
     Dosage: DAILY
  11. CITRACAL WITH VITAMIN D [Concomitant]
     Indication: SUPPLEMENTATION THERAPY
     Dosage: 630 MG. AND 500 IU DAILY

REACTIONS (9)
  - Visual impairment [Unknown]
  - Nervous system disorder [Unknown]
  - Hearing impaired [Not Recovered/Not Resolved]
  - Eye pruritus [Not Recovered/Not Resolved]
  - Osteoporosis [Unknown]
  - Blood cholesterol increased [Unknown]
  - Hypersensitivity [Not Recovered/Not Resolved]
  - Circumstance or information capable of leading to medication error [Recovered/Resolved]
  - Intentional drug misuse [Recovered/Resolved]
